FAERS Safety Report 10076856 (Version 1)
Quarter: 2014Q2

REPORT INFORMATION
  Report Type: Spontaneous
  Country: US (occurrence: None)
  Receive Date: 20140410
  Receipt Date: 20140410
  Transmission Date: 20141212
  Serious: Yes (Death)
  Sender: FDA-Public Use
  Company Number: UTC-046772

PATIENT
  Age: 78 Year
  Sex: Male

DRUGS (12)
  1. TYVASO [Suspect]
     Indication: PULMONARY ARTERIAL HYPERTENSION
     Dosage: 144 MCG (36MCG, 4 IN 1 D), INHALATION
     Route: 055
     Dates: start: 20130501
  2. LAMISIL (TERBINAFINE) [Concomitant]
  3. PROAIR (FLUTICASONE PROPIONATE) [Concomitant]
  4. MUCINEX (GUAIFENESIN) [Concomitant]
  5. ALLEGRA (FEXOFENADINE) [Concomitant]
  6. POTASSIUM [Concomitant]
  7. PREDNISONE [Concomitant]
  8. ASPIRIN (ACETYLSALICYLIC ACID) [Concomitant]
  9. FUROSEMIDE [Concomitant]
  10. ADCIRCA (TADALAFIL) [Concomitant]
  11. FLUTICASONE (FLUTICASONE) [Concomitant]
  12. OMEPRAZOLE [Concomitant]

REACTIONS (1)
  - Death [None]
